FAERS Safety Report 22281070 (Version 1)
Quarter: 2023Q2

REPORT INFORMATION
  Report Type: Spontaneous
  Country: US (occurrence: US)
  Receive Date: 20230504
  Receipt Date: 20230504
  Transmission Date: 20230722
  Serious: No
  Sender: FDA-Public Use
  Company Number: US-CIPLA LTD.-2023US01106

PATIENT

DRUGS (2)
  1. ALBUTEROL [Suspect]
     Active Substance: ALBUTEROL
     Indication: Increased viscosity of upper respiratory secretion
     Dosage: UNK
     Route: 065
     Dates: start: 20230116
  2. MUCUS RELIEF DM [Concomitant]
     Active Substance: DEXTROMETHORPHAN HYDROBROMIDE\GUAIFENESIN
     Indication: Increased viscosity of upper respiratory secretion
     Dosage: UNK (60 MG, 1200 MG)
     Route: 065

REACTIONS (6)
  - Dyspnoea [Unknown]
  - Incorrect dose administered by device [Unknown]
  - Off label use [Unknown]
  - Product use in unapproved indication [Unknown]
  - Device delivery system issue [Unknown]
  - Wrong technique in product usage process [Unknown]

NARRATIVE: CASE EVENT DATE: 20230101
